FAERS Safety Report 16871230 (Version 1)
Quarter: 2019Q3

REPORT INFORMATION
  Report Type: Spontaneous
  Country: DE (occurrence: DE)
  Receive Date: 20190930
  Receipt Date: 20190930
  Transmission Date: 20191005
  Serious: Yes (Congenital Anomaly, Other)
  Sender: FDA-Public Use
  Company Number: DE-AUROBINDO-AUR-APL-2019-062821

PATIENT
  Age: 1 Day
  Sex: Female
  Weight: 4.23 kg

DRUGS (5)
  1. VOMEX A [Concomitant]
     Active Substance: DIMENHYDRINATE
     Indication: MORNING SICKNESS
     Dosage: 300 MILLIGRAM DAILY (UNKNOWN HOW OFTEN I.V AND HOW OFTEN ORALLY)
     Route: 064
  2. CITALOPRAM [Suspect]
     Active Substance: CITALOPRAM HYDROBROMIDE
     Indication: DEPRESSION
     Dosage: 40 MILLIGRAM, ONCE A DAY
     Route: 064
     Dates: start: 20171222
  3. PARACETAMOL [Concomitant]
     Active Substance: ACETAMINOPHEN
     Indication: HEADACHE
     Dosage: 1000 MILLIGRAM, DAILY (BIS 500, BEI BEDARF) / IF NEEDED)
     Route: 064
  4. ACICLOVIR [Concomitant]
     Active Substance: ACYCLOVIR
     Indication: ORAL HERPES
     Dosage: AT THE END OF THE FIRST TRIMESTER AND IN THE THIRD TRIMESTER FOR ONE WEEK EACH
     Route: 064
  5. MIRTAZAPINE. [Concomitant]
     Active Substance: MIRTAZAPINE
     Indication: MORNING SICKNESS
     Dosage: 30 MILLIGRAM, ONCE A DAY (4X 7.5 MG, MAX)/ ALTOGETHER TAKEN ON FOUR DAYS 4 SEPARATED DOSES)
     Route: 064
     Dates: start: 20180315

REACTIONS (2)
  - Foetal exposure during pregnancy [Unknown]
  - Developmental hip dysplasia [Unknown]

NARRATIVE: CASE EVENT DATE: 20181001
